FAERS Safety Report 8993315 (Version 1)
Quarter: 2013Q1

REPORT INFORMATION
  Report Type: Spontaneous
  Country: US (occurrence: US)
  Receive Date: 20130102
  Receipt Date: 20130102
  Transmission Date: 20140127
  Serious: No
  Sender: FDA-Public Use
  Company Number: US-PFIZER INC-2012331498

PATIENT
  Age: 69 Year
  Sex: Male
  Weight: 64.85 kg

DRUGS (3)
  1. VIAGRA [Suspect]
     Indication: ERECTILE DYSFUNCTION
     Dosage: 50 MG, AS NEEDED
     Route: 048
  2. VIAGRA [Suspect]
     Dosage: 100 MG, AS NEEDED
     Route: 048
  3. VIAGRA [Suspect]
     Dosage: 25 MG, AS NEEDED
     Route: 048

REACTIONS (1)
  - Headache [Not Recovered/Not Resolved]
